FAERS Safety Report 13371421 (Version 2)
Quarter: 2017Q2

REPORT INFORMATION
  Report Type: Spontaneous
  Country: US (occurrence: US)
  Receive Date: 20170324
  Receipt Date: 20170403
  Transmission Date: 20170830
  Serious: No
  Sender: FDA-Public Use
  Company Number: US-B.I. PHARMACEUTICALS,INC./RIDGEFIELD-2017-BI-016417

PATIENT
  Sex: Female

DRUGS (2)
  1. GLIMEPERIDE [Concomitant]
     Active Substance: GLIMEPIRIDE
     Indication: DIABETES MELLITUS
     Dosage: UNKNOWN;  FORMULATION: TABLET;
     Route: 048
  2. TRADJENTA [Suspect]
     Active Substance: LINAGLIPTIN
     Indication: TYPE 2 DIABETES MELLITUS
     Dosage: 1 TABLET ONCE A DAY;  FORM STRENGTH: 5 MG; FORMULATION: TABLET? ADMINISTRATION CORRECT? YES ?ACTION(
     Route: 048
     Dates: start: 2015, end: 201702

REACTIONS (4)
  - Blood glucose increased [Unknown]
  - Poor quality sleep [Unknown]
  - Malaise [Unknown]
  - Stress [Unknown]

NARRATIVE: CASE EVENT DATE: 201703
